FAERS Safety Report 6111634-0 (Version None)
Quarter: 2009Q1

REPORT INFORMATION
  Report Type: 
  Country: None (occurrence: None)
  Receive Date: 20090311
  Receipt Date: 20090226
  Transmission Date: 20090719
  Serious: Yes (Hospitalization)
  Sender: FDA-Public Use
  Company Number: FR-PFIZER INC-2009176954

PATIENT

DRUGS (9)
  1. NEURONTIN [Suspect]
     Indication: NEUROPATHY PERIPHERAL
     Route: 048
     Dates: end: 20080825
  2. MABTHERA [Suspect]
     Dosage: 375 MG/M2, UNK
     Route: 042
     Dates: start: 20070423, end: 20080620
  3. BACTRIM DS [Concomitant]
     Dosage: UNK
  4. SPECIAFOLDINE [Concomitant]
     Dosage: UNK
  5. XANAX [Concomitant]
     Dosage: 0.5 MG, 2X/DAY
  6. LAROXYL [Concomitant]
     Dosage: 40 DROPS DAILY
  7. MOPRAL [Concomitant]
     Dosage: 20 MG DAILY
  8. CORTANCYL [Concomitant]
     Dosage: 5 MG DAILY
  9. ENDOXAN [Concomitant]

REACTIONS (2)
  - CHOLANGITIS SCLEROSING [None]
  - LIVER DISORDER [None]
